FAERS Safety Report 11219505 (Version 1)
Quarter: 2015Q2

REPORT INFORMATION
  Report Type: Spontaneous
  Country: GR (occurrence: None)
  Receive Date: 20150624
  Receipt Date: 20150624
  Transmission Date: 20150821
  Serious: Yes (Other)
  Sender: FDA-Public Use
  Company Number: GR2015GSK086729

PATIENT
  Sex: Male

DRUGS (2)
  1. TRUVADA [Suspect]
     Active Substance: EMTRICITABINE\TENOFOVIR DISOPROXIL FUMARATE
     Indication: HIV INFECTION
     Dates: start: 201201
  2. CELSENTRI (MARAVIROC) UNKNOWN [Suspect]
     Active Substance: MARAVIROC
     Indication: HIV INFECTION
     Dates: start: 201201

REACTIONS (1)
  - Bladder papilloma [None]

NARRATIVE: CASE EVENT DATE: 201403
